FAERS Safety Report 26022938 (Version 1)
Quarter: 2025Q4

REPORT INFORMATION
  Report Type: Spontaneous
  Country: US (occurrence: US)
  Receive Date: 20251110
  Receipt Date: 20251110
  Transmission Date: 20260117
  Serious: Yes (Other)
  Sender: STAQ PHARMA - No Location Specified
  Company Number: US-STAQ Pharma, Inc-2188252

PATIENT
  Sex: Female

DRUGS (1)
  1. DESMOPRESSIN ACETATE [Suspect]
     Active Substance: DESMOPRESSIN ACETATE
     Indication: Von Willebrand^s disease

REACTIONS (1)
  - Drug effect less than expected [Recovered/Resolved]
